FAERS Safety Report 12612483 (Version 1)
Quarter: 2016Q3

REPORT INFORMATION
  Report Type: Spontaneous
  Country: US (occurrence: US)
  Receive Date: 20160801
  Receipt Date: 20160801
  Transmission Date: 20161109
  Serious: No
  Sender: FDA-Public Use
  Company Number: US-PRINSTON PHARMACEUTICAL INC.-2015RIS00147

PATIENT
  Sex: Male

DRUGS (2)
  1. LOSARTAN POTASSIUM. [Suspect]
     Active Substance: LOSARTAN POTASSIUM
     Dosage: UNK
     Dates: start: 201502
  2. LOSARTAN (ZYDUS) [Suspect]
     Active Substance: LOSARTAN
     Dosage: UNK
     Dates: start: 201502

REACTIONS (7)
  - Myalgia [Unknown]
  - Drug ineffective [Unknown]
  - Blood pressure fluctuation [Unknown]
  - Diarrhoea [Unknown]
  - Prerenal failure [Unknown]
  - Hypotonia [Unknown]
  - Muscle injury [Unknown]

NARRATIVE: CASE EVENT DATE: 2015
